FAERS Safety Report 9253842 (Version 1)
Quarter: 2013Q2

REPORT INFORMATION
  Report Type: Spontaneous
  Country: US (occurrence: None)
  Receive Date: 20130422
  Receipt Date: 20130422
  Transmission Date: 20140414
  Serious: No
  Sender: FDA-Public Use
  Company Number: None

PATIENT
  Sex: Female
  Weight: 79.83 kg

DRUGS (2)
  1. EFFEXOR XR [Suspect]
     Indication: ANXIETY
     Dosage: 3 TABS  Q.D.  ORAL
     Route: 048
     Dates: start: 20121128, end: 20130104
  2. EFFEXOR XR [Suspect]
     Indication: DEPRESSION
     Dosage: 3 TABS  Q.D.  ORAL
     Route: 048
     Dates: start: 20121128, end: 20130104

REACTIONS (2)
  - Product substitution issue [None]
  - Nausea [None]
